FAERS Safety Report 4620923-8 (Version None)
Quarter: 2005Q1

REPORT INFORMATION
  Report Type: 
  Country: None (occurrence: None)
  Receive Date: 20050325
  Receipt Date: 20050317
  Transmission Date: 20050727
  Serious: Yes (Death)
  Sender: FDA-Public Use
  Company Number: HQWYE019002FEB05

PATIENT
  Age: 75 Year
  Sex: Male

DRUGS (6)
  1. PANTOPRAZOLE SODIUM [Suspect]
     Indication: GASTROOESOPHAGEAL REFLUX DISEASE
     Dosage: 40 MG 1X PER 1 DAY
     Route: 048
     Dates: start: 20040503, end: 20040528
  2. PANTOPRAZOLE SODIUM [Suspect]
     Indication: GASTROOESOPHAGEAL REFLUX DISEASE
     Dosage: 40 MG 1X PER 1 DAY
     Route: 048
     Dates: start: 20040529, end: 20040611
  3. ZOCOR [Concomitant]
  4. MARCUMAR [Concomitant]
  5. ZESTRIL [Concomitant]
  6. LASIX [Concomitant]

REACTIONS (3)
  - MYOCARDIAL ISCHAEMIA [None]
  - SUDDEN DEATH [None]
  - VENTRICULAR FIBRILLATION [None]
